FAERS Safety Report 6762841-5 (Version None)
Quarter: 2010Q2

REPORT INFORMATION
  Report Type: 
  Country: None (occurrence: None)
  Receive Date: 20100609
  Receipt Date: 20100602
  Transmission Date: 20101027
  Serious: Yes (Life-Threatening, Hospitalization, Other)
  Sender: FDA-Public Use
  Company Number: FR-CEPHALON-2010001220

PATIENT
  Sex: Female

DRUGS (6)
  1. ACTIQ [Suspect]
     Indication: BACK PAIN
     Route: 002
     Dates: start: 20080101, end: 20100318
  2. ACTIQ [Suspect]
     Route: 002
     Dates: start: 20080101, end: 20100318
  3. MATRIFEN [Concomitant]
     Indication: PAIN
     Dates: start: 20090201, end: 20100319
  4. OXYCODONE HCL [Concomitant]
     Indication: PAIN
     Dates: start: 20090210, end: 20100218
  5. LYRICA [Concomitant]
     Dates: start: 20070101
  6. XANAX [Concomitant]
     Indication: ANXIETY
     Dates: start: 20090201

REACTIONS (4)
  - DRUG DEPENDENCE [None]
  - DRUG PRESCRIBING ERROR [None]
  - INTENTIONAL DRUG MISUSE [None]
  - RESPIRATORY DEPRESSION [None]
